FAERS Safety Report 7889246-8 (Version None)
Quarter: 2011Q4

REPORT INFORMATION
  Report Type: 
  Country: None (occurrence: None)
  Receive Date: 20111101
  Receipt Date: 20111019
  Transmission Date: 20120403
  Serious: Yes (Other)
  Sender: FDA-Public Use
  Company Number: 2011MA015572

PATIENT
  Age: 60 Year
  Sex: Male

DRUGS (3)
  1. ACETAMINOPHEN [Concomitant]
  2. GLUCOSAMINE [Concomitant]
  3. NAPROXEN [Suspect]
     Dosage: 500 MG
     Dates: end: 20111018

REACTIONS (4)
  - HAEMORRHAGE [None]
  - NERVOUS SYSTEM DISORDER [None]
  - VISUAL IMPAIRMENT [None]
  - CONSTIPATION [None]
